FAERS Safety Report 20853256 (Version 3)
Quarter: 2022Q4

REPORT INFORMATION
  Report Type: Report from Study
  Country: US (occurrence: US)
  Receive Date: 20220520
  Receipt Date: 20221220
  Transmission Date: 20230112
  Serious: Yes (Hospitalization, Other)
  Sender: FDA-Public Use
  Company Number: US-NOVARTISPH-NVSC2022US114530

PATIENT
  Age: 83 Year
  Sex: Male

DRUGS (16)
  1. ILARIS [Suspect]
     Active Substance: CANAKINUMAB
     Indication: Non-small cell lung cancer
     Dosage: 50 MG
     Route: 058
     Dates: start: 20220411, end: 20221129
  2. PACLITAXEL [Suspect]
     Active Substance: PACLITAXEL
     Indication: Non-small cell lung cancer
     Dosage: 100 MG
     Route: 042
     Dates: start: 20220411, end: 20220524
  3. CARBOPLATIN [Suspect]
     Active Substance: CARBOPLATIN
     Indication: Non-small cell lung cancer
     Dosage: 160 MG
     Route: 042
     Dates: start: 20220411, end: 20220524
  4. DEXAMETHASONE [Concomitant]
     Active Substance: DEXAMETHASONE
     Indication: Product used for unknown indication
     Dosage: 4 MG, 1 TAB(S) ORALLY ONCE A DAY X 30 DAYS
     Route: 048
  5. DEXAMETHASONE [Concomitant]
     Active Substance: DEXAMETHASONE
     Dosage: 4 MG, 5 TAB(S) ORALLY ONCE AT BEDTIME
     Route: 048
  6. DEXAMETHASONE [Concomitant]
     Active Substance: DEXAMETHASONE
     Dosage: 4 MG, 3 TAB(S) ORALLY ONCE A DAY
     Route: 048
  7. METOPROLOL TARTRATE [Concomitant]
     Active Substance: METOPROLOL TARTRATE
     Indication: Product used for unknown indication
     Dosage: 50 MG,1 TAB(S) ORALLY 2 TIMES A DAY
     Route: 048
  8. OFRAN [Concomitant]
     Indication: Product used for unknown indication
     Dosage: 8 MG, 1 TAB(S) ORALLY EVERY 8 HOURS, AS NEEDED
     Route: 048
  9. HYDROCHLOROTHIAZIDE [Concomitant]
     Active Substance: HYDROCHLOROTHIAZIDE
     Indication: Product used for unknown indication
     Dosage: 25 MG-37.5 MG ORAL CAPSULE: 1 CAP(S) ORALLY ONCE A
     Route: 048
  10. DIETARY SUPPLEMENT [Concomitant]
     Active Substance: DIETARY SUPPLEMENT
     Indication: Product used for unknown indication
     Dosage: 50 MG, (2000 INTL UNITS) ORAL CAPSULE: 1 CAP(S) ORALLY ONCE A DAY
     Route: 048
  11. VITAMIN D3 [Concomitant]
     Active Substance: CHOLECALCIFEROL
     Indication: Product used for unknown indication
     Dosage: 50 MCG (2000 INTL UNITS) ORAL CAPSULE: 1 CAP(S) ORALLY ONCE A DAY
     Route: 048
  12. MINERALS\VITAMINS [Concomitant]
     Active Substance: MINERALS\VITAMINS
     Indication: Product used for unknown indication
     Dosage: 2 ORAL CAPSULE: 2 TAB(S) ORALLY 1 TO 2 TIMES A DAY
     Route: 048
  13. FINASTERIDE [Concomitant]
     Active Substance: FINASTERIDE
     Indication: Product used for unknown indication
     Dosage: 5 MG ORAL TABLET: 1 TAB(S) ORALLY ONCE A DAY
     Route: 048
  14. AMLODIPINE [Concomitant]
     Active Substance: AMLODIPINE BESYLATE
     Indication: Product used for unknown indication
     Dosage: 10 MG-10 MG ORAL TABLET: 1 TAB(S) ORALLY ONCE A DAY
     Route: 048
  15. TRAZODONE [Concomitant]
     Active Substance: TRAZODONE HYDROCHLORIDE
     Indication: Product used for unknown indication
     Dosage: 50 MG ORAL TABLET: 1 TAB(S) ORALLY ONCE A DAY (AT BEDTIME)
     Route: 048
  16. ELIQUIS [Concomitant]
     Active Substance: APIXABAN
     Indication: Product used for unknown indication
     Dosage: 5 MG ORAL TABLET: 1 TAB(S) ORALLY 2 TIMES A DAY
     Route: 048

REACTIONS (3)
  - Febrile neutropenia [Not Recovered/Not Resolved]
  - Dyspnoea [Unknown]
  - Pyrexia [Unknown]

NARRATIVE: CASE EVENT DATE: 20220511
